FAERS Safety Report 4408367-5 (Version None)
Quarter: 2004Q3

REPORT INFORMATION
  Report Type: 
  Country: None (occurrence: None)
  Receive Date: 20040726
  Receipt Date: 20040726
  Transmission Date: 20050211
  Serious: Yes (Congenital Anomaly, Other)
  Sender: FDA-Public Use
  Company Number: None

PATIENT
  Age: 50 Year
  Sex: Female
  Weight: 49.8957 kg

DRUGS (10)
  1. EFFEXOR XR [Suspect]
     Dosage: DAILY 1 TO 2/DAY TABLETS
     Dates: start: 20030601
  2. EFFEXOR XR [Suspect]
     Dosage: DAILY 1 TO 2/DAY TABLETS
     Dates: start: 20030701
  3. EFFEXOR XR [Suspect]
     Dosage: DAILY 1 TO 2/DAY TABLETS
     Dates: start: 20031001
  4. EFFEXOR XR [Suspect]
     Dosage: DAILY 1 TO 2/DAY TABLETS
     Dates: start: 20031101
  5. CELEXA [Suspect]
     Dosage: DAILY 1 TO 2/DAY TABLET
     Dates: start: 20030501
  6. AMBIEN [Concomitant]
  7. ALLEGRA [Concomitant]
  8. ACYCLOVIR [Concomitant]
  9. ZITHROMAX [Concomitant]
  10. PROMETHAZINE W/CODINE [Concomitant]

REACTIONS (11)
  - AGGRESSION [None]
  - ALCOHOL USE [None]
  - FAMILY STRESS [None]
  - LOSS OF EMPLOYMENT [None]
  - MARITAL PROBLEM [None]
  - MOOD SWINGS [None]
  - RELATIONSHIP BREAKDOWN [None]
  - SCREAMING [None]
  - STRESS SYMPTOMS [None]
  - THINKING ABNORMAL [None]
  - VERBAL ABUSE [None]
